FAERS Safety Report 5159050-2 (Version None)
Quarter: 2006Q4

REPORT INFORMATION
  Report Type: 
  Country: None (occurrence: None)
  Receive Date: 20061117
  Receipt Date: 20061106
  Transmission Date: 20070319
  Serious: Yes (Other)
  Sender: FDA-Public Use
  Company Number: 2006136284

PATIENT
  Age: 50 Year
  Sex: Female
  Weight: 74.3899 kg

DRUGS (10)
  1. XANAX [Suspect]
     Indication: ANXIETY
  2. ZYRTEC [Suspect]
     Indication: MULTIPLE ALLERGIES
  3. VIVELLE-DOT [Concomitant]
  4. PROGESTERONE [Concomitant]
  5. CALCIUM/MINERALS [Concomitant]
  6. VITAMIN B COMPLEX CAP [Concomitant]
  7. VITAMIN A [Concomitant]
  8. VITAMIN E [Concomitant]
  9. NEURONTIN [Suspect]
     Indication: ANXIETY
     Dates: start: 20060101, end: 20060101
  10. CALCIUM (CALCIUM) [Suspect]

REACTIONS (7)
  - ARTHRALGIA [None]
  - BURNING SENSATION [None]
  - DRUG INEFFECTIVE [None]
  - DYSPNOEA [None]
  - MUSCLE SPASMS [None]
  - PAIN [None]
  - PANIC ATTACK [None]
